FAERS Safety Report 25087190 (Version 5)
Quarter: 2025Q2

REPORT INFORMATION
  Report Type: Spontaneous
  Country: US (occurrence: US)
  Receive Date: 20250318
  Receipt Date: 20250606
  Transmission Date: 20250716
  Serious: Yes (Hospitalization, Other)
  Sender: AMGEN
  Company Number: US-AMGEN-USASP2025049636

PATIENT
  Age: 68 Year
  Sex: Female
  Weight: 73 kg

DRUGS (55)
  1. TEPEZZA [Suspect]
     Active Substance: TEPROTUMUMAB-TRBW
     Indication: Endocrine ophthalmopathy
     Dosage: 710 MILLIGRAM, Q3WK, (FIRST INFUSION)
     Route: 040
     Dates: start: 20230522
  2. TEPEZZA [Suspect]
     Active Substance: TEPROTUMUMAB-TRBW
     Dosage: 1420 MILLIGRAM, Q3WK,  (SECOND INFUSION)
     Route: 040
     Dates: start: 20230612
  3. TEPEZZA [Suspect]
     Active Substance: TEPROTUMUMAB-TRBW
     Dosage: 1420 MILLIGRAM, Q3WK (THIRD INFUSION, 20MG/KG)
     Route: 040
     Dates: start: 20230703
  4. TEPEZZA [Suspect]
     Active Substance: TEPROTUMUMAB-TRBW
     Dosage: 1420 MILLIGRAM, Q3WK, (FOURTH INFUSION)
     Route: 040
     Dates: start: 20230724, end: 20230908
  5. TEPEZZA [Suspect]
     Active Substance: TEPROTUMUMAB-TRBW
     Dosage: 1400 MILLIGRAM, Q3WK, (FIFTH INFUSION)
     Route: 040
     Dates: start: 20230817, end: 20230908
  6. TEPEZZA [Suspect]
     Active Substance: TEPROTUMUMAB-TRBW
     Dosage: 1400 MILLIGRAM, Q3WK, (SIXTH/LAST INFUSION)
     Route: 040
     Dates: start: 20230908, end: 20230908
  7. BENADRYL [Concomitant]
     Active Substance: DIPHENHYDRAMINE HYDROCHLORIDE
     Dosage: 10 MILLIGRAM, QD
     Route: 040
  8. BENADRYL [Concomitant]
     Active Substance: DIPHENHYDRAMINE HYDROCHLORIDE
     Route: 040
  9. CARVEDILOL [Concomitant]
     Active Substance: CARVEDILOL
     Route: 065
  10. CARVEDILOL [Concomitant]
     Active Substance: CARVEDILOL
     Dosage: 12.5 MILLIGRAM, BID
     Route: 065
  11. CARVEDILOL [Concomitant]
     Active Substance: CARVEDILOL
     Dosage: 0.5 MILLIGRAM, QD
     Route: 065
  12. MESALAMINE [Concomitant]
     Active Substance: MESALAMINE
     Route: 065
  13. PROBIOTICS NOS [Concomitant]
     Active Substance: PROBIOTICS NOS
     Route: 065
  14. SYNTHROID [Concomitant]
     Active Substance: LEVOTHYROXINE SODIUM
     Route: 065
  15. TRAMADOL [Concomitant]
     Active Substance: TRAMADOL
     Route: 065
  16. VALSARTAN [Concomitant]
     Active Substance: VALSARTAN
     Dosage: 160 MILLIGRAM, BID
     Route: 048
  17. VITAMIN D3 [Concomitant]
     Active Substance: CHOLECALCIFEROL
     Route: 065
  18. ZINC [Concomitant]
     Active Substance: ZINC
     Dosage: 50 MILLIGRAM, QD
     Route: 048
  19. METHYLPREDNISOLONE [Concomitant]
     Active Substance: METHYLPREDNISOLONE
     Route: 065
  20. SODIUM CHLORIDE [Concomitant]
     Active Substance: SODIUM CHLORIDE
     Route: 065
  21. SOLU-MEDROL [Concomitant]
     Active Substance: METHYLPREDNISOLONE SODIUM SUCCINATE
     Route: 065
  22. SOLU-MEDROL [Concomitant]
     Active Substance: METHYLPREDNISOLONE SODIUM SUCCINATE
     Route: 065
  23. BACTERIOSTATIC WATER [Concomitant]
     Active Substance: WATER
     Route: 065
  24. BACTERIOSTATIC WATER [Concomitant]
     Active Substance: WATER
     Route: 065
  25. DIPHENHYDRAMINE HYDROCHLORIDE [Concomitant]
     Active Substance: DIPHENHYDRAMINE HYDROCHLORIDE
     Route: 065
  26. TYLENOL [Concomitant]
     Active Substance: ACETAMINOPHEN
     Route: 048
  27. TYLENOL [Concomitant]
     Active Substance: ACETAMINOPHEN
     Route: 048
  28. SYSTANE (HYPROMELLOSE 2910 (4000 MPA.S)) [Concomitant]
     Active Substance: HYPROMELLOSE 2910 (4000 MPA.S)
     Route: 047
  29. REFRESH CLASSIC [Concomitant]
     Active Substance: POLYVINYL ALCOHOL\POVIDONE
     Route: 047
  30. FUROSEMIDE [Concomitant]
     Active Substance: FUROSEMIDE
     Dosage: 20 MILLIGRAM, QD
     Route: 048
  31. GABAPENTIN [Concomitant]
     Active Substance: GABAPENTIN
     Dosage: 100 MILLIGRAM, QD
     Route: 048
  32. ASPIRIN [Concomitant]
     Active Substance: ASPIRIN
     Dosage: 81 MILLIGRAM, QD
     Route: 048
  33. ASPIRIN [Concomitant]
     Active Substance: ASPIRIN
     Dosage: 325 MILLIGRAM, QD
     Route: 048
  34. ALPRAZOLAM [Concomitant]
     Active Substance: ALPRAZOLAM
     Dosage: 2 MILLIGRAM, QD
     Route: 048
  35. LACTOBACILLUS ACIDOPHILUS [Concomitant]
     Active Substance: LACTOBACILLUS ACIDOPHILUS
     Dosage: UNK UNK, QD
     Route: 048
  36. VITAMINS [Concomitant]
     Active Substance: VITAMINS
     Dosage: UNK UNK, QD
     Route: 048
  37. ZINC GLUCONATE [Concomitant]
     Active Substance: ZINC GLUCONATE
     Dosage: 50 MILLIGRAM, QD
     Route: 048
  38. VITAMIN B COMPLEX [Concomitant]
     Active Substance: CYANOCOBALAMIN\DEXPANTHENOL\NIACINAMIDE\PYRIDOXINE HYDROCHLORIDE\RIBOFLAVIN 5^-PHOSPHATE SODIUM\THIA
     Route: 048
  39. SELENIUM [Concomitant]
     Active Substance: SELENIUM
     Dosage: 200 MICROGRAM, QD
     Route: 048
  40. LIPITOR [Concomitant]
     Active Substance: ATORVASTATIN CALCIUM
     Dosage: 20 MILLIGRAM, QD
     Route: 048
  41. TRAZODONE [Concomitant]
     Active Substance: TRAZODONE HYDROCHLORIDE
     Indication: Insomnia
     Dosage: 50 MILLIGRAM, QD
     Route: 048
  42. TRAZODONE [Concomitant]
     Active Substance: TRAZODONE HYDROCHLORIDE
     Indication: Hypertension
  43. COENZYME Q10 [Concomitant]
     Active Substance: DIETARY SUPPLEMENT\UBIDECARENONE
     Indication: Hypertension
     Dosage: 200 MILLIGRAM, QD
     Route: 048
  44. COENZYME Q10 [Concomitant]
     Active Substance: DIETARY SUPPLEMENT\UBIDECARENONE
     Indication: Muscle spasms
  45. COENZYME Q10 [Concomitant]
     Active Substance: DIETARY SUPPLEMENT\UBIDECARENONE
     Indication: Insomnia
  46. ZANAFLEX [Concomitant]
     Active Substance: TIZANIDINE HYDROCHLORIDE
     Dosage: 4 MILLIGRAM, QD
     Route: 048
  47. KLOR-CON M20 [Concomitant]
     Active Substance: POTASSIUM CHLORIDE
     Dosage: 20 MICROEQUIVALENT, QD
     Route: 048
  48. LASIX [Concomitant]
     Active Substance: FUROSEMIDE
     Indication: Hypertension
     Dosage: 20 MILLIGRAM, QD
     Route: 048
  49. LASIX [Concomitant]
     Active Substance: FUROSEMIDE
     Indication: Muscle spasms
  50. LASIX [Concomitant]
     Active Substance: FUROSEMIDE
     Indication: Insomnia
  51. DIFLUCAN [Concomitant]
     Active Substance: FLUCONAZOLE
     Indication: Fungal infection
     Dosage: 100 MILLIGRAM, QD
     Route: 048
  52. DIFLUCAN [Concomitant]
     Active Substance: FLUCONAZOLE
     Indication: Sinusitis
  53. AZITHROMYCIN [Concomitant]
     Active Substance: AZITHROMYCIN
     Indication: Sinusitis
     Dosage: 500 MILLIGRAM, QD
     Route: 048
  54. AZITHROMYCIN [Concomitant]
     Active Substance: AZITHROMYCIN
     Indication: Fungal infection
  55. COENZYME Q10 [Concomitant]
     Active Substance: DIETARY SUPPLEMENT\UBIDECARENONE
     Dosage: 200 MILLIGRAM, QD
     Route: 048

REACTIONS (45)
  - Deafness permanent [Not Recovered/Not Resolved]
  - Transient ischaemic attack [Unknown]
  - Nephrolithiasis [Unknown]
  - Hypertension [Unknown]
  - Anxiety [Unknown]
  - Emotional distress [Unknown]
  - Pain [Unknown]
  - Product use complaint [Unknown]
  - Diplopia [Unknown]
  - High density lipoprotein decreased [Unknown]
  - Depression [Unknown]
  - Insomnia [Not Recovered/Not Resolved]
  - Vitamin D deficiency [Not Recovered/Not Resolved]
  - Vitamin B12 deficiency [Not Recovered/Not Resolved]
  - Blood urea increased [Not Recovered/Not Resolved]
  - Hyponatraemia [Not Recovered/Not Resolved]
  - Balance disorder [Unknown]
  - Peripheral swelling [Not Recovered/Not Resolved]
  - Night sweats [Unknown]
  - Snoring [Unknown]
  - Paraesthesia [Unknown]
  - Dizziness [Unknown]
  - Increased appetite [Unknown]
  - Temperature intolerance [Unknown]
  - Thirst [Unknown]
  - Hair disorder [Unknown]
  - Lymphadenopathy [Unknown]
  - Nocturia [Unknown]
  - Aortic aneurysm [Unknown]
  - Vision blurred [Unknown]
  - Hyperhidrosis [Unknown]
  - Anxiety [Unknown]
  - Stress [Unknown]
  - Infection [Unknown]
  - Body mass index increased [Unknown]
  - Essential tremor [Unknown]
  - Sinusitis [Unknown]
  - Rash [Unknown]
  - Glucose tolerance impaired [Unknown]
  - Diarrhoea [Unknown]
  - Headache [Unknown]
  - Asthenia [Unknown]
  - Fatigue [Not Recovered/Not Resolved]
  - Muscle spasms [Unknown]
  - Drug ineffective [Unknown]

NARRATIVE: CASE EVENT DATE: 20230101
